FAERS Safety Report 22066639 (Version 3)
Quarter: 2023Q1

REPORT INFORMATION
  Report Type: Report from Study
  Country: NL (occurrence: NL)
  Receive Date: 20230306
  Receipt Date: 20230328
  Transmission Date: 20230417
  Serious: Yes (Disabling, Other)
  Sender: FDA-Public Use
  Company Number: NL-GILEAD-2023-0619106

PATIENT
  Age: 46 Year
  Sex: Female
  Weight: 75 kg

DRUGS (5)
  1. SACITUZUMAB GOVITECAN-HZIY [Suspect]
     Active Substance: SACITUZUMAB GOVITECAN-HZIY
     Indication: Triple negative breast cancer
     Dosage: UNK
     Route: 048
     Dates: start: 20230111, end: 20230224
  2. POLYETHYLENE GLYCOLS [Concomitant]
     Active Substance: POLYETHYLENE GLYCOLS
     Dosage: UNK
     Dates: start: 20230111
  3. OXAZEPAM [Concomitant]
     Active Substance: OXAZEPAM
     Dosage: UNK
     Dates: start: 20230111
  4. DEXAMETHASONE [Concomitant]
     Active Substance: DEXAMETHASONE
     Dosage: UNK
     Dates: start: 20230111
  5. HYPROMELLOSES [Concomitant]
     Active Substance: HYPROMELLOSES

REACTIONS (3)
  - Disease progression [Not Recovered/Not Resolved]
  - Fatigue [Recovered/Resolved]
  - Toxicity to various agents [Not Recovered/Not Resolved]

NARRATIVE: CASE EVENT DATE: 20230224
